FAERS Safety Report 6096422-6 (Version None)
Quarter: 2009Q1

REPORT INFORMATION
  Report Type: 
  Country: None (occurrence: None)
  Receive Date: 20090227
  Receipt Date: 20081215
  Transmission Date: 20090719
  Serious: No
  Sender: FDA-Public Use
  Company Number: A0760360A

PATIENT
  Sex: Male

DRUGS (1)
  1. LAMICTAL [Suspect]
     Indication: BIPOLAR DISORDER
     Dosage: 450MG PER DAY

REACTIONS (3)
  - DRUG INEFFECTIVE [None]
  - ELEVATED MOOD [None]
  - THERAPEUTIC RESPONSE UNEXPECTED [None]
